FAERS Safety Report 16651459 (Version 2)
Quarter: 2019Q3

REPORT INFORMATION
  Report Type: Report from Study
  Country: US (occurrence: US)
  Receive Date: 20190731
  Receipt Date: 20190904
  Transmission Date: 20191004
  Serious: Yes (Other)
  Sender: FDA-Public Use
  Company Number: US-JNJFOC-20190741540

PATIENT
  Age: 75 Year
  Sex: Female

DRUGS (12)
  1. ALBUTEROL                          /00139501/ [Concomitant]
     Active Substance: ALBUTEROL
  2. CALCIUM                            /00060701/ [Concomitant]
     Active Substance: CALCIUM
     Dosage: CALCIUM
  3. SINGULAIR [Concomitant]
     Active Substance: MONTELUKAST SODIUM
  4. IBUPROFEN. [Concomitant]
     Active Substance: IBUPROFEN
  5. IMBRUVICA [Suspect]
     Active Substance: IBRUTINIB
     Indication: CHRONIC LYMPHOCYTIC LEUKAEMIA
     Dosage: 420 MG, QD
     Route: 048
     Dates: start: 20190416, end: 20190715
  6. BIOTIN [Concomitant]
     Active Substance: BIOTIN
  7. MULTIVITAMINS                      /00116001/ [Concomitant]
     Active Substance: VITAMINS
  8. VITAMIN B12 [Concomitant]
     Active Substance: CYANOCOBALAMIN
  9. LOVASTATIN. [Concomitant]
     Active Substance: LOVASTATIN
  10. RECLAST [Concomitant]
     Active Substance: ZOLEDRONIC ACID
  11. VITAMIN D3 [Concomitant]
     Active Substance: CHOLECALCIFEROL
  12. VOLTAREN [Concomitant]
     Active Substance: DICLOFENAC SODIUM

REACTIONS (2)
  - Hip arthroplasty [Unknown]
  - Contusion [Unknown]

NARRATIVE: CASE EVENT DATE: 20190715
